FAERS Safety Report 4501258-0 (Version None)
Quarter: 2004Q4

REPORT INFORMATION
  Report Type: 
  Country: None (occurrence: None)
  Receive Date: 20041110
  Receipt Date: 20041026
  Transmission Date: 20050328
  Serious: Yes (Hospitalization)
  Sender: FDA-Public Use
  Company Number: 2004-BP-10727NB

PATIENT
  Age: 80 Year
  Sex: Female

DRUGS (9)
  1. MOBIC [Suspect]
     Indication: RHEUMATOID ARTHRITIS
     Dosage: 10 MG (NR), PO
     Route: 048
     Dates: start: 20030804, end: 20040104
  2. PREDNISOLONE [Suspect]
     Dosage: PO
     Route: 048
  3. LASIX [Suspect]
     Dosage: PO
     Route: 048
  4. MYONAL (EPERISONE HYDROCHLORIDE) [Suspect]
     Dosage: PO
     Route: 048
  5. BENET (RISEDRONATE SODIUM) [Suspect]
     Dosage: PO
     Route: 048
  6. LORCAM (LORNOXICAM) [Suspect]
     Dosage: PO
     Route: 048
  7. PROCYLIN (BERAPROST SODIUM) [Suspect]
     Dosage: PO
     Route: 048
  8. SELBEX (TEPRENONE) [Concomitant]
  9. MAGNESIUM OXIDE (MAGNESIUM OXIDE) [Concomitant]

REACTIONS (2)
  - GASTROINTESTINAL NECROSIS [None]
  - GASTROINTESTINAL PERFORATION [None]
